FAERS Safety Report 4748020-1 (Version None)
Quarter: 2005Q3

REPORT INFORMATION
  Report Type: 
  Country: None (occurrence: None)
  Receive Date: 20050818
  Receipt Date: 20050811
  Transmission Date: 20060218
  Serious: Yes (Other)
  Sender: FDA-Public Use
  Company Number: US-BRISTOL-MYERS SQUIBB COMPANY-13073069

PATIENT
  Age: 66 Year
  Sex: Female
  Weight: 49 kg

DRUGS (6)
  1. ERBITUX [Suspect]
     Indication: COLORECTAL CANCER METASTATIC
     Dosage: LOADING DOSE.  INTERRUPTED.
     Route: 042
     Dates: start: 20050714, end: 20050714
  2. BENADRYL [Concomitant]
     Indication: PREMEDICATION
     Route: 042
     Dates: start: 20050714, end: 20050714
  3. DECADRON [Concomitant]
     Indication: PREMEDICATION
     Route: 042
     Dates: start: 20050714, end: 20050714
  4. TAGAMET [Concomitant]
     Indication: PREMEDICATION
     Route: 042
     Dates: start: 20050714, end: 20050714
  5. IRINOTECAN HCL [Concomitant]
  6. PREDNISONE [Concomitant]

REACTIONS (1)
  - HAEMOLYTIC ANAEMIA [None]
